FAERS Safety Report 22814663 (Version 2)
Quarter: 2024Q1

REPORT INFORMATION
  Report Type: Spontaneous
  Country: JP (occurrence: JP)
  Receive Date: 20230811
  Receipt Date: 20240201
  Transmission Date: 20240409
  Serious: Yes (Other)
  Sender: FDA-Public Use
  Company Number: JP-009507513-2308JPN004036

PATIENT
  Age: 60 Year
  Sex: Male

DRUGS (1)
  1. PEMBROLIZUMAB [Suspect]
     Active Substance: PEMBROLIZUMAB
     Indication: Non-small cell lung cancer
     Dosage: UNK, Q3W

REACTIONS (3)
  - Agranulocytosis [Recovering/Resolving]
  - Cytomegalovirus gastritis [Recovering/Resolving]
  - Immune-mediated enterocolitis [Recovering/Resolving]
